FAERS Safety Report 19276602 (Version 1)
Quarter: 2021Q2

REPORT INFORMATION
  Report Type: Spontaneous
  Country: US (occurrence: US)
  Receive Date: 20210519
  Receipt Date: 20210519
  Transmission Date: 20210717
  Serious: No
  Sender: FDA-Public Use
  Company Number: US-MILLICENT HOLDINGS LTD.-MILL20210656

PATIENT
  Age: 65 Year
  Sex: Female

DRUGS (1)
  1. INTRAROSA [Suspect]
     Active Substance: PRASTERONE
     Indication: VAGINAL DISORDER
     Dosage: UNKNOWN
     Route: 067
     Dates: start: 202011, end: 202102

REACTIONS (7)
  - Soft tissue swelling [Recovering/Resolving]
  - Breast pain [Recovering/Resolving]
  - Palpitations [Not Recovered/Not Resolved]
  - Lymphadenopathy [Unknown]
  - Breast inflammation [Recovering/Resolving]
  - Off label use [Unknown]
  - Product dose omission issue [None]

NARRATIVE: CASE EVENT DATE: 2020
